FAERS Safety Report 4530151-2 (Version None)
Quarter: 2004Q4

REPORT INFORMATION
  Report Type: 
  Country: None (occurrence: None)
  Receive Date: 20041215
  Receipt Date: 20041215
  Transmission Date: 20050328
  Serious: Yes (Hospitalization)
  Sender: FDA-Public Use
  Company Number: None

PATIENT
  Age: 52 Year
  Sex: Female
  Weight: 73.5734 kg

DRUGS (1)
  1. KETEK [Suspect]
     Indication: BRONCHITIS
     Dosage: 800MG  AT BEDTIME ORAL
     Route: 048
     Dates: start: 20031209, end: 20041212

REACTIONS (1)
  - GASTROINTESTINAL HAEMORRHAGE [None]
